FAERS Safety Report 4316477-6 (Version None)
Quarter: 2004Q1

REPORT INFORMATION
  Report Type: 
  Country: None (occurrence: None)
  Receive Date: 20040311
  Receipt Date: 20040303
  Transmission Date: 20041129
  Serious: Yes (Other)
  Sender: FDA-Public Use
  Company Number: JP-JNJFOC-20040300735

PATIENT
  Age: 25 Year
  Sex: Female

DRUGS (3)
  1. LEVOFLOXACIN [Suspect]
     Indication: LARYNGOTRACHEITIS
     Dosage: 500 MG, INTRAVENOUS
     Route: 042
     Dates: start: 20040217, end: 20040218
  2. LEVOFLOXACIN [Suspect]
     Indication: LARYNGOTRACHEITIS
     Dosage: 500 MG,ORAL
     Route: 048
     Dates: start: 20040219, end: 20040223
  3. MACROLIDE ( ) MACROLIDES [Concomitant]

REACTIONS (3)
  - DELIRIUM [None]
  - EUPHORIC MOOD [None]
  - HALLUCINATION [None]
